FAERS Safety Report 25883179 (Version 2)
Quarter: 2025Q4

REPORT INFORMATION
  Report Type: Report from Study
  Country: US (occurrence: US)
  Receive Date: 20251006
  Receipt Date: 20251008
  Transmission Date: 20260118
  Serious: Yes (Other)
  Sender: UCB
  Company Number: US-UCBSA-2025061615

PATIENT
  Age: 53 Year
  Sex: Female
  Weight: 41 kg

DRUGS (1)
  1. FINTEPLA [Suspect]
     Active Substance: FENFLURAMINE
     Indication: Product used for unknown indication
     Dosage: 0.35 MILLIGRAM PER KILOGRAM PER DAY (TOTAL DOSE OF 30.1 MILLIGRAM PER DAY)
     Dates: start: 20250330

REACTIONS (5)
  - Pulmonary valve incompetence [Not Recovered/Not Resolved]
  - Right ventricular dysfunction [Not Recovered/Not Resolved]
  - Left ventricular dysfunction [Not Recovered/Not Resolved]
  - Overdose [Unknown]
  - Off label use [Unknown]

NARRATIVE: CASE EVENT DATE: 20250330
